FAERS Safety Report 7389554-3 (Version None)
Quarter: 2011Q2

REPORT INFORMATION
  Report Type: 
  Country: None (occurrence: None)
  Receive Date: 20110401
  Receipt Date: 20110321
  Transmission Date: 20111010
  Serious: Yes (Other)
  Sender: FDA-Public Use
  Company Number: PHHY2011BR23468

PATIENT
  Sex: Female

DRUGS (8)
  1. METFORMIN HCL [Suspect]
  2. VALLERGAN [Concomitant]
  3. MONOCORDIL [Concomitant]
  4. AAS [Concomitant]
  5. SIMVACOR [Concomitant]
  6. SELOZOK [Concomitant]
  7. DIOVAN [Suspect]
  8. ALPRAZOLAM [Concomitant]

REACTIONS (2)
  - INFARCTION [None]
  - RENAL DISORDER [None]
